FAERS Safety Report 8058579-7 (Version None)
Quarter: 2012Q1

REPORT INFORMATION
  Report Type: 
  Country: None (occurrence: None)
  Receive Date: 20120120
  Receipt Date: 20120113
  Transmission Date: 20120608
  Serious: Yes (Hospitalization)
  Sender: FDA-Public Use
  Company Number: FR-JNJFOC-20120104768

PATIENT
  Age: 43 Year
  Sex: Male

DRUGS (5)
  1. STABLON [Concomitant]
     Dosage: STARTED SOME TIME BEFORE
     Route: 065
  2. HALDOL [Suspect]
     Indication: PRODUCT USED FOR UNKNOWN INDICATION
     Route: 065
     Dates: start: 20090101
  3. VALIUM [Concomitant]
     Route: 065
     Dates: start: 20090101
  4. ARTANE [Concomitant]
     Dosage: STARTED SOME TIME BEFORE
     Route: 065
  5. EQUANIL [Concomitant]
     Route: 065
     Dates: start: 20090101

REACTIONS (3)
  - RENAL FAILURE ACUTE [None]
  - RHABDOMYOLYSIS [None]
  - HYPONATRAEMIA [None]
